FAERS Safety Report 23384216 (Version 2)
Quarter: 2024Q2

REPORT INFORMATION
  Report Type: Spontaneous
  Country: US (occurrence: US)
  Receive Date: 20240109
  Receipt Date: 20240611
  Transmission Date: 20240716
  Serious: No
  Sender: FDA-Public Use
  Company Number: US-PFIZER INC-202300456524

PATIENT
  Age: 69 Year
  Sex: Female

DRUGS (2)
  1. XELJANZ [Suspect]
     Active Substance: TOFACITINIB CITRATE
     Dosage: 5 MG
  2. PLEGRIDY [Concomitant]
     Active Substance: PEGINTERFERON BETA-1A
     Indication: Osteoporosis
     Dosage: UNK

REACTIONS (1)
  - Pain [Unknown]
